FAERS Safety Report 20165836 (Version 1)
Quarter: 2021Q4

REPORT INFORMATION
  Report Type: Spontaneous
  Country: SI (occurrence: SI)
  Receive Date: 20211209
  Receipt Date: 20211209
  Transmission Date: 20220303
  Serious: Yes (Other)
  Sender: FDA-Public Use
  Company Number: SI-002147023-NVSC2021SI236601

PATIENT
  Age: 54 Year
  Sex: Female
  Weight: 70 kg

DRUGS (17)
  1. ALUNBRIG [Suspect]
     Active Substance: BRIGATINIB
     Indication: Product used for unknown indication
     Dosage: UNK
     Route: 065
     Dates: start: 201910
  2. ZYKADIA [Suspect]
     Active Substance: CERITINIB
     Indication: Lung adenocarcinoma
     Dosage: 450 MILLIGRAM, QD
     Route: 065
     Dates: start: 201807, end: 201809
  3. ZYKADIA [Suspect]
     Active Substance: CERITINIB
     Dosage: 300 MILLIGRAM, QD
     Route: 065
     Dates: start: 20180924, end: 20181104
  4. ZYKADIA [Suspect]
     Active Substance: CERITINIB
     Dosage: 450 MILLIGRAM, QD
     Route: 065
     Dates: start: 20181105, end: 20190408
  5. ZYKADIA [Suspect]
     Active Substance: CERITINIB
     Dosage: 300 MILLIGRAM, QD
     Route: 065
     Dates: start: 20190416, end: 20191105
  6. DEXAMETHASONE [Concomitant]
     Active Substance: DEXAMETHASONE
     Indication: Product used for unknown indication
     Dosage: 8 MILLIGRAM, Q12H
     Route: 065
     Dates: start: 20180710, end: 20180820
  7. XGEVA [Concomitant]
     Active Substance: DENOSUMAB
     Indication: Product used for unknown indication
     Dosage: 120 MILLIGRAM, Q4WEEKS
     Route: 058
     Dates: start: 20170626, end: 201906
  8. XGEVA [Concomitant]
     Active Substance: DENOSUMAB
     Dosage: 120 MILLIGRAM
     Route: 058
     Dates: start: 201906
  9. RISPERDAL [Concomitant]
     Active Substance: RISPERIDONE
     Indication: Product used for unknown indication
     Dosage: 1 MILLIGRAM, Q12H
     Route: 065
     Dates: start: 20180820, end: 20180920
  10. ALPRAZOLAM [Concomitant]
     Active Substance: ALPRAZOLAM
     Indication: Product used for unknown indication
     Dosage: 0.25 MILLIGRAM
     Route: 065
     Dates: start: 20180820, end: 20180920
  11. CIPRALEX [Concomitant]
     Active Substance: ESCITALOPRAM OXALATE
     Indication: Product used for unknown indication
     Dosage: 10 MILLIGRAM
     Route: 065
     Dates: start: 20180820, end: 20180920
  12. Rojazol [Concomitant]
     Indication: Product used for unknown indication
     Dosage: UNK
     Route: 048
  13. Ciprobay [Concomitant]
     Indication: Product used for unknown indication
     Dosage: 500 MILLIGRAM, Q12H
     Route: 065
     Dates: start: 20180901, end: 20180914
  14. CALCIUM CARBONATE [Concomitant]
     Active Substance: CALCIUM CARBONATE
     Indication: Product used for unknown indication
     Dosage: 1 GRAM, QD
     Route: 065
     Dates: start: 20170626
  15. PANTOPRAZOLE SODIUM [Concomitant]
     Active Substance: PANTOPRAZOLE SODIUM
     Indication: Product used for unknown indication
     Dosage: 40 MILLIGRAM, QD
     Route: 065
  16. EUTHYROX [Concomitant]
     Active Substance: LEVOTHYROXINE SODIUM
     Indication: Product used for unknown indication
     Dosage: 25 MICROGRAM
     Route: 065
     Dates: start: 20180820, end: 20180924
  17. CHOLECALCIFEROL [Concomitant]
     Active Substance: CHOLECALCIFEROL
     Indication: Product used for unknown indication
     Dosage: 5 GTT DROPS, QD
     Route: 065
     Dates: start: 20170626

REACTIONS (8)
  - Lung adenocarcinoma [Not Recovered/Not Resolved]
  - Transaminases increased [Recovered/Resolved]
  - Malignant neoplasm progression [Not Recovered/Not Resolved]
  - Metastases to central nervous system [Not Recovered/Not Resolved]
  - Hepatotoxicity [Recovered/Resolved]
  - Muscle twitching [Recovered/Resolved]
  - Hypercholesterolaemia [Unknown]
  - Diarrhoea [Recovered/Resolved]

NARRATIVE: CASE EVENT DATE: 20180924
